FAERS Safety Report 8520809-2 (Version None)
Quarter: 2012Q3

REPORT INFORMATION
  Report Type: 
  Country: None (occurrence: None)
  Receive Date: 20120719
  Receipt Date: 20120710
  Transmission Date: 20120928
  Serious: Yes (Hospitalization)
  Sender: FDA-Public Use
  Company Number: CA-JNJFOC-20120704928

PATIENT
  Sex: Female
  Weight: 52.16 kg

DRUGS (10)
  1. SIMVASTATIN [Concomitant]
     Route: 065
  2. ALPRAZOLAM [Concomitant]
     Route: 065
  3. MORPHINE [Concomitant]
     Route: 065
  4. ZOFRAN [Concomitant]
     Route: 065
  5. TRAZODONE HYDROCHLORIDE [Concomitant]
     Route: 065
  6. XANAX [Concomitant]
     Route: 065
  7. IMOVANE [Concomitant]
     Route: 065
  8. REMICADE [Suspect]
     Indication: CROHN'S DISEASE
     Route: 042
     Dates: start: 20100518
  9. MULTIVITAMIN [Concomitant]
     Route: 065
  10. ATIVAN [Concomitant]
     Route: 065

REACTIONS (2)
  - PYELONEPHRITIS [None]
  - SEPSIS [None]
